FAERS Safety Report 11894267 (Version 1)
Quarter: 2016Q1

REPORT INFORMATION
  Report Type: Spontaneous
  Country: US (occurrence: None)
  Receive Date: 20160106
  Receipt Date: 20160106
  Transmission Date: 20160526
  Serious: Yes (Death, Hospitalization)
  Sender: FDA-Public Use
  Company Number: None

PATIENT
  Age: 3 Year
  Sex: Female
  Weight: 13.26 kg

DRUGS (9)
  1. METHOTREXATE [Suspect]
     Active Substance: METHOTREXATE
     Dates: end: 20150831
  2. DEXAMETHASONE. [Suspect]
     Active Substance: DEXAMETHASONE
     Dates: end: 20150823
  3. CYTARABINE. [Suspect]
     Active Substance: CYTARABINE
     Dates: end: 20150910
  4. CYCLOPHOSPHAMIDE. [Suspect]
     Active Substance: CYCLOPHOSPHAMIDE
     Dates: end: 20150831
  5. LEUCOVORIN CALCIUM. [Suspect]
     Active Substance: LEUCOVORIN CALCIUM
     Dates: end: 20150903
  6. THIOGUANINE (6-TG) [Suspect]
     Active Substance: THIOGUANINE
     Dates: end: 20150913
  7. VINCRISTINE SULFATE. [Suspect]
     Active Substance: VINCRISTINE SULFATE
     Dates: end: 20150817
  8. ONCASPAR [Suspect]
     Active Substance: PEGASPARGASE
     Dates: end: 20150806
  9. DOXORUBICIN HYDROCHLORIDE. [Suspect]
     Active Substance: DOXORUBICIN HYDROCHLORIDE
     Dates: end: 20150817

REACTIONS (8)
  - Cardio-respiratory arrest [None]
  - Unresponsive to stimuli [None]
  - Bradycardia [None]
  - Anaemia [None]
  - Hypotension [None]
  - Escherichia test positive [None]
  - Vomiting [None]
  - Tachypnoea [None]

NARRATIVE: CASE EVENT DATE: 20150916
